FAERS Safety Report 4592225-X (Version None)
Quarter: 2005Q1

REPORT INFORMATION
  Report Type: 
  Country: None (occurrence: None)
  Receive Date: 20050228
  Receipt Date: 20040819
  Transmission Date: 20050727
  Serious: No
  Sender: FDA-Public Use
  Company Number: US-BRISTOL-MYERS SQUIBB COMPANY-12679916

PATIENT
  Age: 18 Year
  Sex: Female
  Weight: 58 kg

DRUGS (4)
  1. ABILIFY [Suspect]
     Indication: BIPOLAR DISORDER
     Route: 048
     Dates: start: 20031016
  2. ABILIFY [Suspect]
     Indication: PSYCHOTIC DISORDER
     Route: 048
     Dates: start: 20031016
  3. PEPCID AC [Concomitant]
  4. PRENATAL VITAMINS [Concomitant]

REACTIONS (1)
  - PREGNANCY [None]
